FAERS Safety Report 11157737 (Version 2)
Quarter: 2015Q2

REPORT INFORMATION
  Report Type: Spontaneous
  Country: US (occurrence: None)
  Receive Date: 20150601
  Receipt Date: 20150616
  Transmission Date: 20150821
  Serious: Yes (Life-Threatening, Hospitalization, Other)
  Sender: FDA-Public Use
  Company Number: FR-ALSI-201500095

PATIENT
  Age: 82 Year
  Sex: Male
  Weight: 52 kg

DRUGS (2)
  1. OXYGENE [Suspect]
     Active Substance: OXYGEN
     Indication: HYPOXIA
     Dosage: 15 L ONCE A MINUTE RESPIRATORY
     Route: 055
  2. DUROGESIC [Suspect]
     Active Substance: FENTANYL
     Indication: PRODUCT USED FOR UNKNOWN INDICATION
     Route: 062

REACTIONS (4)
  - Hypotension [None]
  - Oxygen saturation decreased [None]
  - Underdose [None]
  - Device failure [None]

NARRATIVE: CASE EVENT DATE: 20150510
